FAERS Safety Report 5262862-8 (Version None)
Quarter: 2007Q1

REPORT INFORMATION
  Report Type: 
  Country: None (occurrence: None)
  Receive Date: 20070312
  Receipt Date: 20070312
  Transmission Date: 20070707
  Serious: Yes (Other)
  Sender: FDA-Public Use
  Company Number: US-GLAXOSMITHKLINE-A0642526A

PATIENT
  Age: 25 Year
  Sex: Female

DRUGS (3)
  1. CONTAC DAY + NIGHT COLD/FLU CAPLETS [Suspect]
     Dosage: 2CAPL SEE DOSAGE TEXT
     Route: 048
     Dates: start: 20070305, end: 20070306
  2. LUVOX [Suspect]
     Indication: OBSESSIVE-COMPULSIVE DISORDER
     Route: 065
  3. ALBUTEROL [Concomitant]

REACTIONS (10)
  - AMNESIA [None]
  - ANXIETY [None]
  - CEREBROVASCULAR ACCIDENT [None]
  - DISORIENTATION [None]
  - DRUG INTERACTION [None]
  - EYE DISORDER [None]
  - FATIGUE [None]
  - FEELING ABNORMAL [None]
  - MIDDLE INSOMNIA [None]
  - MOTOR DYSFUNCTION [None]
